FAERS Safety Report 6406033-8 (Version None)
Quarter: 2009Q4

REPORT INFORMATION
  Report Type: 
  Country: None (occurrence: None)
  Receive Date: 20091019
  Receipt Date: 20091009
  Transmission Date: 20100525
  Serious: Yes (Other)
  Sender: FDA-Public Use
  Company Number: JP-ABBOTT-09P-087-0602523-00

PATIENT
  Age: 72 Year
  Sex: Male

DRUGS (9)
  1. PRERAN [Suspect]
     Indication: DRUG USE FOR UNKNOWN INDICATION
  2. ATORVASTATIN CALCIUM [Suspect]
     Indication: DRUG USE FOR UNKNOWN INDICATION
  3. OMEPRAZOLE [Suspect]
     Indication: DRUG USE FOR UNKNOWN INDICATION
  4. SIGMART [Concomitant]
     Indication: DRUG USE FOR UNKNOWN INDICATION
  5. ANPLAG [Concomitant]
     Indication: DRUG USE FOR UNKNOWN INDICATION
  6. MUCOSTA [Concomitant]
     Indication: DRUG USE FOR UNKNOWN INDICATION
  7. GLIMICRON [Concomitant]
     Indication: DRUG USE FOR UNKNOWN INDICATION
  8. MYSLEE [Concomitant]
     Indication: DRUG USE FOR UNKNOWN INDICATION
  9. MUCODYNE [Concomitant]
     Indication: DRUG USE FOR UNKNOWN INDICATION

REACTIONS (1)
  - HEPATITIS [None]
